FAERS Safety Report 14783318 (Version 4)
Quarter: 2019Q1

REPORT INFORMATION
  Report Type: Spontaneous
  Country: US (occurrence: US)
  Receive Date: 20180420
  Receipt Date: 20190329
  Transmission Date: 20190417
  Serious: Yes (Other)
  Sender: FDA-Public Use
  Company Number: US-ASTRAZENECA-2018SE47925

PATIENT
  Sex: Male
  Weight: 121.2 kg

DRUGS (31)
  1. PREVACID [Suspect]
     Active Substance: LANSOPRAZOLE
     Route: 065
  2. SINGULAIR [Concomitant]
     Active Substance: MONTELUKAST SODIUM
  3. NASONEX [Concomitant]
     Active Substance: MOMETASONE FUROATE
  4. BROVANA [Concomitant]
     Active Substance: ARFORMOTEROL TARTRATE
  5. PRILOSEC OTC [Suspect]
     Active Substance: OMEPRAZOLE MAGNESIUM
     Route: 048
  6. LASIX [Concomitant]
     Active Substance: FUROSEMIDE
  7. VIAGRA [Concomitant]
     Active Substance: SILDENAFIL CITRATE
  8. DOXYCYCLINE HYCLATE. [Concomitant]
     Active Substance: DOXYCYCLINE HYCLATE
  9. FEXOFENADINE [Concomitant]
     Active Substance: FEXOFENADINE\FEXOFENADINE HYDROCHLORIDE
  10. DILTIAZEM. [Concomitant]
     Active Substance: DILTIAZEM
  11. MICARDIS [Concomitant]
     Active Substance: TELMISARTAN
  12. MOBIC [Concomitant]
     Active Substance: MELOXICAM
  13. SPIRIVA [Concomitant]
     Active Substance: TIOTROPIUM BROMIDE MONOHYDRATE
  14. ULTRAM [Concomitant]
     Active Substance: TRAMADOL HYDROCHLORIDE
  15. NEXIUM [Suspect]
     Active Substance: ESOMEPRAZOLE MAGNESIUM
     Route: 048
     Dates: end: 201803
  16. PROTONIX [Suspect]
     Active Substance: PANTOPRAZOLE SODIUM
     Route: 065
  17. TRADJENTA [Concomitant]
     Active Substance: LINAGLIPTIN
  18. NEXIUM 24HR [Suspect]
     Active Substance: ESOMEPRAZOLE MAGNESIUM
     Route: 048
  19. DEXILANT [Suspect]
     Active Substance: DEXLANSOPRAZOLE
     Route: 065
  20. ZETIA [Concomitant]
     Active Substance: EZETIMIBE
  21. PRILOSEC [Suspect]
     Active Substance: OMEPRAZOLE MAGNESIUM
     Route: 048
  22. PREVACID 24 HR [Suspect]
     Active Substance: LANSOPRAZOLE
     Route: 065
  23. AUGMENTIN [Concomitant]
     Active Substance: AMOXICILLIN\CLAVULANATE POTASSIUM
  24. LEVAQUIN [Concomitant]
     Active Substance: LEVOFLOXACIN
  25. ACTOS [Concomitant]
     Active Substance: PIOGLITAZONE HYDROCHLORIDE
  26. AMARYL [Concomitant]
     Active Substance: GLIMEPIRIDE
  27. PRAVACHOL [Concomitant]
     Active Substance: PRAVASTATIN SODIUM
  28. SYMBICORT [Concomitant]
     Active Substance: BUDESONIDE\FORMOTEROL FUMARATE DIHYDRATE
  29. ASPIRIN. [Concomitant]
     Active Substance: ASPIRIN
  30. TRILIPIX [Concomitant]
     Active Substance: FENOFIBRIC ACID
  31. VOLTAREN [Concomitant]
     Active Substance: DICLOFENAC SODIUM

REACTIONS (4)
  - Chronic kidney disease [Unknown]
  - Renal failure [Unknown]
  - Rebound acid hypersecretion [Unknown]
  - Acute kidney injury [Unknown]
